FAERS Safety Report 20648940 (Version 1)
Quarter: 2022Q1

REPORT INFORMATION
  Report Type: Spontaneous
  Country: US (occurrence: None)
  Receive Date: 20220329
  Receipt Date: 20220329
  Transmission Date: 20220423
  Serious: Yes (Death, Congenital Anomaly)
  Sender: FDA-Public Use
  Company Number: None

PATIENT
  Age: 26 Year
  Sex: Female
  Weight: 64.5 kg

DRUGS (3)
  1. FOSTAMATINIB [Suspect]
     Active Substance: FOSTAMATINIB
     Indication: Immune thrombocytopenia
     Dosage: FREQUENCY : TWICE A DAY;?
     Route: 048
     Dates: start: 20220315
  2. Gamunex-C  64 grams [Concomitant]
     Dates: start: 20220314, end: 20220314
  3. Gamunex-C  64 grams [Concomitant]
     Dates: start: 20220315, end: 20220315

REACTIONS (5)
  - Pregnancy [None]
  - Exposure during pregnancy [None]
  - Brief resolved unexplained event [None]
  - Foetal death [None]
  - Maternal drugs affecting foetus [None]

NARRATIVE: CASE EVENT DATE: 20220323
